FAERS Safety Report 16053840 (Version 1)
Quarter: 2019Q1

REPORT INFORMATION
  Report Type: Spontaneous
  Country: US (occurrence: US)
  Receive Date: 20190308
  Receipt Date: 20190308
  Transmission Date: 20190418
  Serious: Yes (Hospitalization)
  Sender: FDA-Public Use
  Company Number: US-ASTRAZENECA-2019SE35906

PATIENT
  Age: 23797 Day
  Sex: Male
  Weight: 130 kg

DRUGS (15)
  1. DIAZEPAM. [Concomitant]
     Active Substance: DIAZEPAM
  2. METFORMIN HCL [Concomitant]
     Active Substance: METFORMIN HYDROCHLORIDE
  3. QUINAPRIL. [Concomitant]
     Active Substance: QUINAPRIL
  4. FENOFIBRATE. [Concomitant]
     Active Substance: FENOFIBRATE
  5. PREVACID [Concomitant]
     Active Substance: LANSOPRAZOLE
  6. EZETIMIBE. [Concomitant]
     Active Substance: EZETIMIBE
  7. ONGLYZA [Suspect]
     Active Substance: SAXAGLIPTIN HYDROCHLORIDE
     Indication: TYPE 2 DIABETES MELLITUS
     Dosage: 5.0MG UNKNOWN
     Route: 048
     Dates: start: 20150309, end: 20180414
  8. ANTARA [Concomitant]
     Active Substance: FENOFIBRATE
  9. MOTRIN [Concomitant]
     Active Substance: IBUPROFEN
  10. ALBUTEROL. [Concomitant]
     Active Substance: ALBUTEROL
  11. KOMBIGLYZE XR [Suspect]
     Active Substance: METFORMIN HYDROCHLORIDE\SAXAGLIPTIN HYDROCHLORIDE
     Route: 048
  12. ZETIA [Concomitant]
     Active Substance: EZETIMIBE
  13. CRESTOR [Concomitant]
     Active Substance: ROSUVASTATIN CALCIUM
  14. AMLODIPINE [Concomitant]
     Active Substance: AMLODIPINE BESYLATE
  15. GLIMEPIRIDE. [Concomitant]
     Active Substance: GLIMEPIRIDE

REACTIONS (1)
  - Cardiac failure congestive [Unknown]

NARRATIVE: CASE EVENT DATE: 20170710
